FAERS Safety Report 9049978 (Version 2)
Quarter: 2013Q1

REPORT INFORMATION
  Report Type: Spontaneous
  Country: US (occurrence: US)
  Receive Date: 20130205
  Receipt Date: 20130311
  Transmission Date: 20140127
  Serious: Yes (Death, Hospitalization)
  Sender: FDA-Public Use
  Company Number: US-ELI_LILLY_AND_COMPANY-US201301008626

PATIENT
  Age: 81 Year
  Sex: Male

DRUGS (1)
  1. FORTEO [Suspect]
     Indication: SPINAL DISORDER
     Dosage: UNK UNK, QD
     Dates: start: 201210

REACTIONS (3)
  - Death [Fatal]
  - Haemorrhage [Unknown]
  - Off label use [Unknown]
